FAERS Safety Report 4556385-9 (Version None)
Quarter: 2005Q1

REPORT INFORMATION
  Report Type: 
  Country: None (occurrence: None)
  Receive Date: 20050110
  Receipt Date: 20031211
  Transmission Date: 20050727
  Serious: Yes (Other)
  Sender: FDA-Public Use
  Company Number: HCDA20040001

PATIENT
  Sex: Male

DRUGS (2)
  1. HYDROCODONE [Suspect]
     Indication: FIBROMYALGIA
     Dosage: PO
     Route: 048
     Dates: start: 20030101
  2. HYDROCODONE [Suspect]
     Indication: MULTIPLE SCLEROSIS
     Dosage: PO
     Route: 048
     Dates: start: 20030101

REACTIONS (1)
  - DRUG DEPENDENCE [None]
